FAERS Safety Report 7767634-8 (Version None)
Quarter: 2011Q3

REPORT INFORMATION
  Report Type: 
  Country: None (occurrence: None)
  Receive Date: 20110919
  Receipt Date: 20110902
  Transmission Date: 20111222
  Serious: Yes (Hospitalization, Other)
  Sender: FDA-Public Use
  Company Number: AUR-APL-2011-04624

PATIENT
  Age: 79 Year
  Sex: Male

DRUGS (9)
  1. LISINOPRIL [Suspect]
     Indication: PRODUCT USED FOR UNKNOWN INDICATION
  2. HYDROCHLOROTHIAZIDE [Suspect]
     Indication: PRODUCT USED FOR UNKNOWN INDICATION
     Dosage: UNKNOWN
  3. ASPIRIN [Concomitant]
  4. PREDNISONE [Concomitant]
  5. ZOLPIDEM [Concomitant]
  6. METOPROLOL TARTRATE [Concomitant]
  7. ASPIRIN [Concomitant]
  8. WARFARIN SODIUM [Concomitant]
  9. DIGOXIN [Concomitant]

REACTIONS (13)
  - ANGIOEDEMA [None]
  - INFLUENZA LIKE ILLNESS [None]
  - THERAPEUTIC RESPONSE DECREASED [None]
  - LEUKOCYTOCLASTIC VASCULITIS [None]
  - DRUG HYPERSENSITIVITY [None]
  - HYPONATRAEMIA [None]
  - OSTEOARTHRITIS [None]
  - ATRIAL FIBRILLATION [None]
  - BLOOD CHLORIDE DECREASED [None]
  - OSTEOPENIA [None]
  - SCLERITIS [None]
  - OBSTRUCTIVE AIRWAYS DISORDER [None]
  - ABDOMINAL PAIN LOWER [None]
